FAERS Safety Report 15126160 (Version 1)
Quarter: 2018Q3

REPORT INFORMATION
  Report Type: Spontaneous
  Country: US (occurrence: US)
  Receive Date: 20180614
  Receipt Date: 20180614
  Transmission Date: 20181010
  Serious: Yes (Hospitalization)
  Sender: FDA-Public Use
  Company Number: None

PATIENT
  Age: 47 Year
  Sex: Female

DRUGS (1)
  1. GLATIRAMER [Suspect]
     Active Substance: GLATIRAMER
     Indication: MULTIPLE SCLEROSIS
     Route: 058
     Dates: start: 20180425

REACTIONS (8)
  - Unevaluable event [None]
  - Aphonia [None]
  - Memory impairment [None]
  - Aphasia [None]
  - Condition aggravated [None]
  - Neuralgia [None]
  - Feeling hot [None]
  - Gait disturbance [None]

NARRATIVE: CASE EVENT DATE: 20180523
